FAERS Safety Report 16105740 (Version 1)
Quarter: 2019Q2

REPORT INFORMATION
  Report Type: Spontaneous
  Country: US (occurrence: US)
  Receive Date: 20190321
  Receipt Date: 20190321
  Transmission Date: 20190711
  Serious: No
  Sender: FDA-Public Use
  Company Number: None

PATIENT
  Age: 31 Year
  Sex: Female
  Weight: 83.25 kg

DRUGS (1)
  1. TALTZ [Suspect]
     Active Substance: IXEKIZUMAB
     Indication: PSORIASIS
     Dosage: ?          QUANTITY:2 INJECTION(S);OTHER FREQUENCY:2 IN INITIAL DOSE;OTHER ROUTE:INJECTION INTO THIGHS?
     Dates: start: 20190222, end: 20190222

REACTIONS (9)
  - Pain [None]
  - Feeling hot [None]
  - Contusion [None]
  - Pyrexia [None]
  - Erythema [None]
  - Lethargy [None]
  - Pruritus [None]
  - Dizziness [None]
  - Rash [None]

NARRATIVE: CASE EVENT DATE: 20190301
